FAERS Safety Report 9206993 (Version 2)
Quarter: 2013Q2

REPORT INFORMATION
  Report Type: Spontaneous
  Country: AU (occurrence: AU)
  Receive Date: 20130403
  Receipt Date: 20130418
  Transmission Date: 20140414
  Serious: Yes (Death, Hospitalization)
  Sender: FDA-Public Use
  Company Number: AU-B.I. PHARMACEUTICALS,INC./RIDGEFIELD-2013-AU-00402AU

PATIENT
  Age: 78 Year
  Sex: Male

DRUGS (2)
  1. PRADAXA [Suspect]
     Indication: CEREBROVASCULAR ACCIDENT PROPHYLAXIS
     Dosage: 220 MG
     Dates: start: 20110927
  2. PRADAXA [Suspect]
     Indication: ATRIAL FIBRILLATION

REACTIONS (8)
  - Death [Fatal]
  - Dialysis [Unknown]
  - Cardiac failure [Unknown]
  - Anaemia [Unknown]
  - Melaena [Unknown]
  - Cellulitis [Unknown]
  - Malaise [Unknown]
  - Anaemia [Unknown]
